FAERS Safety Report 6684309-7 (Version None)
Quarter: 2010Q2

REPORT INFORMATION
  Report Type: 
  Country: None (occurrence: None)
  Receive Date: 20100416
  Receipt Date: 20100406
  Transmission Date: 20101027
  Serious: Yes (Hospitalization, Other)
  Sender: FDA-Public Use
  Company Number: PHHY2010BR21465

PATIENT
  Age: 46 Year
  Sex: Female

DRUGS (3)
  1. METHERGINE [Suspect]
     Indication: HAEMORRHAGE
     Dosage: 1 DF, DAILY
     Route: 048
     Dates: start: 20030101
  2. METHERGINE [Suspect]
     Dosage: 0.125 MG, UNK
  3. METHERGINE [Suspect]
     Dosage: 1 DF, Q8H

REACTIONS (8)
  - ABORTION [None]
  - ANTEPARTUM HAEMORRHAGE [None]
  - BLOODY DISCHARGE [None]
  - DRUG EXPOSURE DURING PREGNANCY [None]
  - HAEMORRHAGE [None]
  - HYPERTENSION [None]
  - OVARIAN CYST [None]
  - TREATMENT NONCOMPLIANCE [None]
